FAERS Safety Report 4429758-2 (Version None)
Quarter: 2004Q3

REPORT INFORMATION
  Report Type: 
  Country: None (occurrence: None)
  Receive Date: 20040817
  Receipt Date: 20040804
  Transmission Date: 20050211
  Serious: Yes (Hospitalization)
  Sender: FDA-Public Use
  Company Number: 2004-0007270

PATIENT
  Age: 42 Year
  Sex: Male
  Weight: 86.1834 kg

DRUGS (6)
  1. TENOFOVIR DISOPROXOL FUMARATE(TENOFOVIR DISOPROXOL FUMARATE) (TABLET) [Suspect]
     Indication: HIV INFECTION
     Dosage: 300 MG, 1 IN 1 D, ORAL
     Route: 048
     Dates: start: 20031007
  2. EMTRICITABINE (EMTRICITABINE) (CAPSULE) [Suspect]
     Indication: HIV INFECTION
     Dosage: 200 MG, 1 IN 1 D, ORAL
     Route: 048
     Dates: start: 20031007
  3. EFAVIRENZ (EFAVIRENZ) (TABLET) [Concomitant]
  4. OMEPRAZOLE [Concomitant]
  5. ECHINACEA (ECHINACEA EXTRACT) [Concomitant]
  6. ASCORBIC ACID [Concomitant]

REACTIONS (2)
  - CHOLECYSTECTOMY [None]
  - SPLENECTOMY [None]
